FAERS Safety Report 8712003 (Version 3)
Quarter: 2014Q3

REPORT INFORMATION
  Report Type: Spontaneous
  Country: US (occurrence: US)
  Receive Date: 20120807
  Receipt Date: 20140814
  Transmission Date: 20150326
  Serious: Yes (Hospitalization, Disabling)
  Sender: FDA-Public Use
  Company Number: US-009507513-2011SP050850

PATIENT
  Sex: Female
  Weight: 49.9 kg

DRUGS (4)
  1. NUVARING [Suspect]
     Active Substance: ETHINYL ESTRADIOL\ETONOGESTREL
     Indication: CONTRACEPTION
  2. COUGH, COLD, AND FLU THERAPIES (UNSPECIFIED) [Concomitant]
     Active Substance: UNSPECIFIED INGREDIENT
     Indication: ATTENTION DEFICIT/HYPERACTIVITY DISORDER
     Dates: end: 20091220
  3. LAMICTAL [Concomitant]
     Active Substance: LAMOTRIGINE
     Indication: BIPOLAR DISORDER
     Dates: end: 20091220
  4. NUVARING [Suspect]
     Active Substance: ETHINYL ESTRADIOL\ETONOGESTREL
     Indication: DYSMENORRHOEA
     Dosage: UNK UNK, QM
     Route: 067
     Dates: start: 20091114, end: 200912

REACTIONS (17)
  - Vomiting [Unknown]
  - Off label use [Unknown]
  - Lymphadenopathy [Not Recovered/Not Resolved]
  - Lymphadenopathy mediastinal [Unknown]
  - Migraine [Not Recovered/Not Resolved]
  - Mental disorder [Unknown]
  - Major depression [Unknown]
  - Partial seizures [Unknown]
  - Mediastinal mass [Unknown]
  - Neck pain [Unknown]
  - Venous thrombosis [Recovered/Resolved]
  - Oropharyngeal pain [Unknown]
  - Migraine [Not Recovered/Not Resolved]
  - Diarrhoea [Unknown]
  - Suicidal ideation [Unknown]
  - Neurological symptom [Unknown]
  - Cerebral thrombosis [Recovered/Resolved]

NARRATIVE: CASE EVENT DATE: 200911
